FAERS Safety Report 11684703 (Version 1)
Quarter: 2015Q4

REPORT INFORMATION
  Report Type: Report from Study
  Country: US (occurrence: US)
  Receive Date: 20151029
  Receipt Date: 20151029
  Transmission Date: 20160304
  Serious: Yes (Other)
  Sender: FDA-Public Use
  Company Number: US-GLAXOSMITHKLINE-US2015GSK154285

PATIENT

DRUGS (4)
  1. CEFUROXIME SODIUM. [Suspect]
     Active Substance: CEFUROXIME SODIUM
     Indication: CATARACT OPERATION
     Dosage: UNK
  2. OFLOXACIN. [Concomitant]
     Active Substance: OFLOXACIN
  3. DICLOFENAC [Concomitant]
     Active Substance: DICLOFENAC
  4. PREDNISOLONE ACETATE. [Concomitant]
     Active Substance: PREDNISOLONE ACETATE

REACTIONS (1)
  - Macular oedema [Unknown]
